FAERS Safety Report 4927370-X (Version None)
Quarter: 2006Q1

REPORT INFORMATION
  Report Type: 
  Country: None (occurrence: None)
  Receive Date: 20060228
  Receipt Date: 20051010
  Transmission Date: 20060701
  Serious: No
  Sender: FDA-Public Use
  Company Number: US-GLAXOSMITHKLINE-A0577685A

PATIENT
  Age: 39 Year
  Sex: Female

DRUGS (8)
  1. IMITREX [Suspect]
     Indication: MIGRAINE
     Dosage: 1INJ AS REQUIRED
     Route: 058
  2. TOPAMAX [Concomitant]
  3. DIHYDROERGOTAMINE MESYLATE [Concomitant]
     Route: 065
  4. VICODIN [Concomitant]
  5. MULTI-VITAMIN [Concomitant]
     Route: 065
  6. CALCIUM GLUCONATE [Concomitant]
  7. GLUCOSAMINE [Concomitant]
     Route: 065
  8. CHONDROITIN [Concomitant]
     Route: 065

REACTIONS (3)
  - BURNING SENSATION [None]
  - DRUG INEFFECTIVE [None]
  - PHARMACEUTICAL PRODUCT COMPLAINT [None]
